FAERS Safety Report 13099367 (Version 2)
Quarter: 2017Q1

REPORT INFORMATION
  Report Type: Spontaneous
  Country: US (occurrence: US)
  Receive Date: 20170109
  Receipt Date: 20170223
  Transmission Date: 20170428
  Serious: No
  Sender: FDA-Public Use
  Company Number: US-PFIZER INC-2017004748

PATIENT
  Age: 18 Year
  Sex: Female
  Weight: 56.69 kg

DRUGS (5)
  1. SPIRONOLACTONE. [Concomitant]
     Active Substance: SPIRONOLACTONE
     Indication: ACNE
     Dosage: UNK, 1X/DAY
     Dates: start: 20161031
  2. AMITRIPTYLINE [Concomitant]
     Active Substance: AMITRIPTYLINE
     Indication: HEADACHE
     Dosage: UNK, 1X/DAY (LOW DOSE AT NIGHT)
     Dates: start: 201510
  3. WELLBUTRIN [Concomitant]
     Active Substance: BUPROPION HYDROCHLORIDE
     Indication: ANXIETY
     Dosage: 25 MG, 1X/DAY, (DAILY)
     Dates: start: 201611
  4. ZITHROMAX [Suspect]
     Active Substance: AZITHROMYCIN DIHYDRATE
     Indication: PAEDIATRIC AUTOIMMUNE NEUROPSYCHIATRIC DISORDERS ASSOCIATED WITH STREPTOCOCCAL INFECTION
     Dosage: 500 MG, 1X/DAY
     Route: 048
     Dates: start: 20161121, end: 20161210
  5. WELLBUTRIN [Concomitant]
     Active Substance: BUPROPION HYDROCHLORIDE
     Indication: DEPRESSION
     Dosage: 100 MG, 1X/DAY

REACTIONS (2)
  - Abdominal pain upper [Recovered/Resolved]
  - Incorrect drug administration duration [Recovered/Resolved]

NARRATIVE: CASE EVENT DATE: 20161205
